FAERS Safety Report 22520044 (Version 1)
Quarter: 2023Q2

REPORT INFORMATION
  Report Type: Spontaneous
  Country: US (occurrence: US)
  Receive Date: 20230605
  Receipt Date: 20230605
  Transmission Date: 20230721
  Serious: No
  Sender: FDA-Public Use
  Company Number: US-UROGEN PHARMA LTD.-2023-UGN-000041

PATIENT

DRUGS (4)
  1. JELMYTO [Suspect]
     Active Substance: MITOMYCIN
     Indication: Transitional cell cancer of the renal pelvis and ureter
     Dosage: 15 MILLILITER, EVERY 2 WEEKS (INSTILLATION)
     Dates: start: 20230309, end: 20230309
  2. JELMYTO [Suspect]
     Active Substance: MITOMYCIN
     Dosage: 15 MILLILITER, EVERY 2 WEEKS (INSTILLATION)
     Dates: start: 20230321, end: 20230321
  3. JELMYTO [Suspect]
     Active Substance: MITOMYCIN
     Dosage: 15 MILLILITER, EVERY 2 WEEKS (INSTILLATION)
     Dates: start: 20230404, end: 20230404
  4. JELMYTO [Suspect]
     Active Substance: MITOMYCIN
     Dosage: 15 MILLILITER, EVERY 2 WEEKS (INSTILLATION)
     Dates: start: 20230414, end: 20230414

REACTIONS (1)
  - Hypotension [Recovered/Resolved]

NARRATIVE: CASE EVENT DATE: 20230414
